FAERS Safety Report 13897506 (Version 1)
Quarter: 2017Q3

REPORT INFORMATION
  Report Type: Spontaneous
  Country: US (occurrence: US)
  Receive Date: 20170823
  Receipt Date: 20170823
  Transmission Date: 20171127
  Serious: No
  Sender: FDA-Public Use
  Company Number: US-SA-2017SA090711

PATIENT
  Sex: Male

DRUGS (1)
  1. MULTAQ [Suspect]
     Active Substance: DRONEDARONE
     Route: 065
     Dates: start: 20170503

REACTIONS (3)
  - Dyspnoea [Unknown]
  - Orthopnoea [Unknown]
  - Weight increased [Unknown]
